FAERS Safety Report 12990025 (Version 1)
Quarter: 2016Q4

REPORT INFORMATION
  Report Type: Spontaneous
  Country: US (occurrence: US)
  Receive Date: 20161130
  Receipt Date: 20161130
  Transmission Date: 20170207
  Serious: Yes (Death)
  Sender: FDA-Public Use
  Company Number: None

PATIENT
  Age: 70 Year
  Sex: Male

DRUGS (1)
  1. REVLIMID [Suspect]
     Active Substance: LENALIDOMIDE
     Indication: PLASMACYTOMA
     Route: 048
     Dates: start: 20151207

REACTIONS (5)
  - Pneumonia [None]
  - Acute kidney injury [None]
  - Sepsis [None]
  - Hypotension [None]
  - Septic shock [None]

NARRATIVE: CASE EVENT DATE: 20161129
